FAERS Safety Report 8431714-4 (Version None)
Quarter: 2012Q2

REPORT INFORMATION
  Report Type: 
  Country: None (occurrence: None)
  Receive Date: 20120613
  Receipt Date: 20120604
  Transmission Date: 20120825
  Serious: Yes (Hospitalization)
  Sender: FDA-Public Use
  Company Number: US-BAYER-201029601NA

PATIENT
  Age: 24 Year
  Sex: Female
  Weight: 83.447 kg

DRUGS (4)
  1. YAZ [Suspect]
     Indication: CONTRACEPTION
     Dosage: UNK
     Dates: start: 20080601, end: 20080801
  2. IMPLANON [Concomitant]
     Dosage: UNK
     Dates: start: 20080312, end: 20080625
  3. NAPROXEN (ALEVE) [Concomitant]
  4. TYLENOL W/ CODEINE [Concomitant]

REACTIONS (11)
  - LIFE EXPECTANCY SHORTENED [None]
  - AMNESIA [None]
  - MOBILITY DECREASED [None]
  - ANXIETY [None]
  - HEMIPLEGIA [None]
  - HEADACHE [None]
  - INTRACRANIAL VENOUS SINUS THROMBOSIS [None]
  - CEREBROVASCULAR ACCIDENT [None]
  - THROMBOSIS [None]
  - DEPRESSION [None]
  - MONOPARESIS [None]
